FAERS Safety Report 24674454 (Version 1)
Quarter: 2024Q4

REPORT INFORMATION
  Report Type: Spontaneous
  Country: RO (occurrence: RO)
  Receive Date: 20241128
  Receipt Date: 20241128
  Transmission Date: 20250115
  Serious: Yes (Life-Threatening, Hospitalization, Other)
  Sender: MACLEODS
  Company Number: RO-MLMSERVICE-20210219-2736138-1

PATIENT

DRUGS (11)
  1. LOPINAVIR\RITONAVIR [Suspect]
     Active Substance: LOPINAVIR\RITONAVIR
     Indication: COVID-19 pneumonia
     Route: 065
  2. MYCOPHENOLIC ACID [Suspect]
     Active Substance: MYCOPHENOLIC ACID
     Indication: Immunosuppressant drug therapy
     Route: 065
     Dates: start: 201709, end: 20200405
  3. MYCOPHENOLIC ACID [Suspect]
     Active Substance: MYCOPHENOLIC ACID
     Route: 065
     Dates: start: 20240405, end: 20240407
  4. MYCOPHENOLIC ACID [Suspect]
     Active Substance: MYCOPHENOLIC ACID
     Route: 065
     Dates: start: 20200407, end: 20200410
  5. BASILIXIMAB [Suspect]
     Active Substance: BASILIXIMAB
     Indication: Immunosuppressant drug therapy
     Route: 065
     Dates: start: 201709, end: 201709
  6. TACROLIMUS [Suspect]
     Active Substance: TACROLIMUS
     Indication: Immunosuppressant drug therapy
     Dosage: EXTENDED-RELEASE TACROLIMUS
     Route: 048
     Dates: start: 201709, end: 20200407
  7. TACROLIMUS [Suspect]
     Active Substance: TACROLIMUS
     Dosage: EXTENDED-RELEASE TACROLIMUS
     Route: 048
     Dates: start: 20200410, end: 20200412
  8. TACROLIMUS [Suspect]
     Active Substance: TACROLIMUS
     Dosage: EXTENDED-RELEASE TACROLIMUS
     Route: 048
     Dates: start: 20200407, end: 20200410
  9. TACROLIMUS [Suspect]
     Active Substance: TACROLIMUS
     Dosage: EXTENDED-RELEASE TACROLIMUS
     Route: 048
     Dates: start: 20200428, end: 20200428
  10. TACROLIMUS [Suspect]
     Active Substance: TACROLIMUS
     Dosage: EXTENDED-RELEASE TACROLIMUS
     Route: 048
     Dates: start: 20200426, end: 20200428
  11. PREDNISONE [Suspect]
     Active Substance: PREDNISONE
     Indication: Immunosuppressant drug therapy
     Route: 065
     Dates: start: 201709, end: 202004

REACTIONS (11)
  - Nephropathy toxic [Recovered/Resolved]
  - Acute kidney injury [Recovered/Resolved]
  - Nephropathy [Recovered/Resolved]
  - Dehydration [Recovered/Resolved]
  - Hypercoagulation [Recovered/Resolved]
  - Pneumonia bacterial [Recovered/Resolved]
  - COVID-19 pneumonia [Recovered/Resolved]
  - Renal tubular dysfunction [Recovered/Resolved]
  - Thrombocytopenia [Recovered/Resolved]
  - Overdose [Recovered/Resolved]
  - Drug interaction [Recovered/Resolved]

NARRATIVE: CASE EVENT DATE: 20200401
